FAERS Safety Report 7931071-3 (Version None)
Quarter: 2011Q4

REPORT INFORMATION
  Report Type: 
  Country: None (occurrence: None)
  Receive Date: 20111121
  Receipt Date: 20111107
  Transmission Date: 20120403
  Serious: Yes (Other)
  Sender: FDA-Public Use
  Company Number: JP-JNJFOC-20111108544

PATIENT
  Age: 68 Year
  Sex: Female

DRUGS (2)
  1. DIPHENHYDRAMINE HCL [Suspect]
     Route: 065
  2. DIPHENHYDRAMINE HCL [Suspect]
     Indication: HYPERSENSITIVITY
     Dosage: TAKEN FOR 2 DAYS PRIOR TO THE SAE.
     Route: 065

REACTIONS (1)
  - URINARY RETENTION [None]
